FAERS Safety Report 21257255 (Version 2)
Quarter: 2022Q3

REPORT INFORMATION
  Report Type: Spontaneous
  Country: GB (occurrence: GB)
  Receive Date: 20220826
  Receipt Date: 20220905
  Transmission Date: 20221026
  Serious: Yes (Hospitalization, Other)
  Sender: FDA-Public Use
  Company Number: GB-ASPAR-ASP-21-00726

PATIENT
  Sex: Female

DRUGS (13)
  1. ATORVASTATIN [Suspect]
     Active Substance: ATORVASTATIN
     Indication: Product used for unknown indication
     Dosage: 10 MILLIGRAM, ONCE A DAY (1 AT NIGHT)
     Route: 065
     Dates: start: 20220726, end: 20220727
  2. GLICLAZIDE [Suspect]
     Active Substance: GLICLAZIDE
     Indication: Product used for unknown indication
     Dosage: UNK (GLICLAZIDE 60 MR - ONE MORNING AND NIGHT)
     Route: 065
     Dates: start: 20220726, end: 20220727
  3. METFORMIN [Suspect]
     Active Substance: METFORMIN HYDROCHLORIDE
     Indication: Product used for unknown indication
     Dosage: 500 MILLIGRAM, ONCE A DAY (ONE DAILY)
     Route: 065
     Dates: start: 20220726, end: 20220727
  4. SITAGLIPTIN [Suspect]
     Active Substance: SITAGLIPTIN
     Indication: Product used for unknown indication
     Dosage: 25 MILLIGRAM (2 MORNING AND 1 AT NIGHT)
     Route: 065
     Dates: start: 20220726, end: 20220727
  5. CARBIDOPA\LEVODOPA [Suspect]
     Active Substance: CARBIDOPA\LEVODOPA
     Indication: Product used for unknown indication
     Dosage: UNK (CO-CARELDOPA 12.5/50MG - 2 IN MORNING)
     Route: 065
     Dates: start: 20220726, end: 20220727
  6. CARBIDOPA\LEVODOPA [Suspect]
     Active Substance: CARBIDOPA\LEVODOPA
     Dosage: UNK (CO-CARELDOPA 25MG/100MG - ONE AT NIGHT)
     Route: 065
     Dates: start: 20220726, end: 20220727
  7. CHOLECALCIFEROL [Suspect]
     Active Substance: CHOLECALCIFEROL
     Indication: Product used for unknown indication
     Dosage: UNK (ONE IN MORNING)
     Route: 065
     Dates: start: 20220726, end: 20220727
  8. LEVOTHYROXINE [Suspect]
     Active Substance: LEVOTHYROXINE
     Indication: Product used for unknown indication
     Dosage: 25 MICROGRAM, ONCE A DAY (ONE DAILY)
     Route: 065
     Dates: start: 20220726, end: 20220727
  9. LEVOTHYROXINE [Suspect]
     Active Substance: LEVOTHYROXINE
     Dosage: 100 MICROGRAM, ONCE A DAY (ONE DAILY)
     Route: 065
     Dates: start: 20220726, end: 20220727
  10. SENNA [Suspect]
     Active Substance: SENNA LEAF\SENNOSIDES\SENNOSIDES A AND B
     Indication: Product used for unknown indication
     Dosage: 7 MILLIGRAM, TWO TIMES A DAY (2 AT NIGHT)
     Route: 065
     Dates: start: 20220726, end: 20220727
  11. AMITRIPTYLINE [Concomitant]
     Active Substance: AMITRIPTYLINE
     Indication: Product used for unknown indication
     Dosage: 10 MILLIGRAM (3 AT NIGHT)
     Route: 065
  12. APIXABAN [Concomitant]
     Active Substance: APIXABAN
     Indication: Product used for unknown indication
     Dosage: UNK (2.5MG - ONE TWICE DAILY)
     Route: 065
  13. ACETAMINOPHEN [Concomitant]
     Active Substance: ACETAMINOPHEN
     Indication: Product used for unknown indication
     Dosage: 1000 MILLIGRAM, 3 TIMES A DAY (2 X 500MG THREE TIMES A DAY)
     Route: 065

REACTIONS (5)
  - Circulatory collapse [Recovered/Resolved]
  - Product dispensing error [Recovered/Resolved]
  - Wrong product administered [Unknown]
  - Wrong patient received product [Unknown]
  - Loss of consciousness [Unknown]

NARRATIVE: CASE EVENT DATE: 20220726
